FAERS Safety Report 17270955 (Version 2)
Quarter: 2020Q1

REPORT INFORMATION
  Report Type: Spontaneous
  Country: US (occurrence: US)
  Receive Date: 20200115
  Receipt Date: 20200123
  Transmission Date: 20200409
  Serious: Yes (Life-Threatening, Hospitalization, Other)
  Sender: FDA-Public Use
  Company Number: US-SA-2020SA008203

PATIENT
  Age: 58 Year
  Sex: Female

DRUGS (5)
  1. MIDAZOLAM HYDROCHLORIDE. [Suspect]
     Active Substance: MIDAZOLAM HYDROCHLORIDE
     Indication: SEDATION
     Dosage: 3 MG
  2. LIDOCAINE. [Concomitant]
     Active Substance: LIDOCAINE
     Dosage: UNK (NEBULIZED), STRENGTH 1 %
     Route: 045
  3. LIDOCAINE. [Concomitant]
     Active Substance: LIDOCAINE
     Dosage: UNK, STRENGTH UNKNOWN
     Route: 061
  4. DIPHENHYDRAMINE. [Suspect]
     Active Substance: DIPHENHYDRAMINE
     Indication: SEDATION
     Dosage: 25 MG OVER TEN MINUTES
  5. FENTANYL. [Suspect]
     Active Substance: FENTANYL
     Indication: SEDATION
     Dosage: 75 UG

REACTIONS (7)
  - Generalised tonic-clonic seizure [Recovered/Resolved]
  - Ventricular hypokinesia [Recovered/Resolved]
  - Pulmonary oedema [Recovered/Resolved]
  - Shock [Recovered/Resolved]
  - Pulseless electrical activity [Recovered/Resolved]
  - Respiratory failure [Recovered/Resolved]
  - Oliguria [Unknown]
